FAERS Safety Report 11935813 (Version 2)
Quarter: 2016Q2

REPORT INFORMATION
  Report Type: Spontaneous
  Country: US (occurrence: US)
  Receive Date: 20160121
  Receipt Date: 20160418
  Transmission Date: 20160815
  Serious: No
  Sender: FDA-Public Use
  Company Number: US-OTSUKA-2015_015597

PATIENT
  Age: 44 Year
  Sex: Male
  Weight: 67.12 kg

DRUGS (4)
  1. REXULTI [Suspect]
     Active Substance: BREXPIPRAZOLE
     Indication: MAJOR DEPRESSION
     Dosage: 1.5 MG, QHS
     Route: 048
     Dates: start: 20151111, end: 20151120
  2. FETZIMA [Suspect]
     Active Substance: LEVOMILNACIPRAN HYDROCHLORIDE
     Dosage: 120 MG, QD
     Route: 065
  3. FETZIMA [Suspect]
     Active Substance: LEVOMILNACIPRAN HYDROCHLORIDE
     Indication: POST-TRAUMATIC STRESS DISORDER
     Dosage: 80 MG, QD
     Route: 065
  4. ROZEREM [Suspect]
     Active Substance: RAMELTEON
     Indication: PRODUCT USED FOR UNKNOWN INDICATION
     Dosage: 8 MG, QHS
     Route: 065

REACTIONS (2)
  - Off label use [Unknown]
  - Extrapyramidal disorder [Recovered/Resolved]

NARRATIVE: CASE EVENT DATE: 20151111
